FAERS Safety Report 7664507-6 (Version None)
Quarter: 2011Q3

REPORT INFORMATION
  Report Type: 
  Country: None (occurrence: None)
  Receive Date: 20110806
  Receipt Date: 20110315
  Transmission Date: 20111222
  Serious: No
  Sender: FDA-Public Use
  Company Number: US-ABBOTT-11P-163-0706875-00

PATIENT
  Age: 54 Year
  Sex: Female
  Weight: 59.02 kg

DRUGS (7)
  1. UNKNOWN OTHER MEDICATIONS [Concomitant]
     Indication: PRODUCT USED FOR UNKNOWN INDICATION
  2. NIASPAN [Suspect]
     Dosage: LOT # AND EXPIRATION WERE UNAVAILABLE.
     Route: 048
  3. NIASPAN [Suspect]
     Route: 048
  4. ASPIRIN [Concomitant]
     Indication: PRODUCT USED FOR UNKNOWN INDICATION
     Dosage: AT HOUR OF SLEEP WITH NIASPAN
     Route: 048
  5. ZETIA [Concomitant]
     Indication: PRODUCT USED FOR UNKNOWN INDICATION
  6. NIASPAN [Suspect]
     Indication: BLOOD CHOLESTEROL INCREASED
     Route: 048
     Dates: end: 20100801
  7. PREMARIN [Concomitant]
     Indication: PRODUCT USED FOR UNKNOWN INDICATION

REACTIONS (5)
  - NIGHT SWEATS [None]
  - FLUSHING [None]
  - SYNCOPE [None]
  - MUSCLE SPASMS [None]
  - MUSCULAR WEAKNESS [None]
